FAERS Safety Report 15677465 (Version 2)
Quarter: 2018Q4

REPORT INFORMATION
  Report Type: Spontaneous
  Country: ES (occurrence: ES)
  Receive Date: 20181130
  Receipt Date: 20181220
  Transmission Date: 20190205
  Serious: Yes (Life-Threatening, Hospitalization)
  Sender: FDA-Public Use
  Company Number: PHHY2016ES084763

PATIENT
  Age: 25 Year
  Sex: Male

DRUGS (6)
  1. RISPERIDONE. [Suspect]
     Active Substance: RISPERIDONE
     Indication: BIPOLAR DISORDER
     Dosage: 4.5 MG, QD
     Route: 065
  2. LITHIUM. [Suspect]
     Active Substance: LITHIUM
     Indication: BIPOLAR DISORDER
     Dosage: 1600 MG, QD
     Route: 065
  3. LAMOTRIGINE. [Suspect]
     Active Substance: LAMOTRIGINE
     Dosage: 200 MG, UNK
     Route: 065
  4. LORMETAZEPAM [Concomitant]
     Active Substance: LORMETAZEPAM
     Indication: BIPOLAR DISORDER
     Dosage: 2 MG, QD
     Route: 065
  5. LAMOTRIGINE. [Suspect]
     Active Substance: LAMOTRIGINE
     Dosage: 50 MG, QD
     Route: 065
  6. LAMOTRIGINE. [Suspect]
     Active Substance: LAMOTRIGINE
     Indication: BIPOLAR DISORDER
     Dosage: 25 MG, QD
     Route: 065

REACTIONS (16)
  - Leukocytosis [Unknown]
  - Erythema [Unknown]
  - Hyponatraemia [Unknown]
  - Drug reaction with eosinophilia and systemic symptoms [Recovered/Resolved]
  - Face oedema [Unknown]
  - Acute kidney injury [Unknown]
  - Dermatitis exfoliative generalised [Unknown]
  - Lymphadenopathy [Unknown]
  - Eosinophilia [Unknown]
  - Haemodynamic instability [Recovered/Resolved]
  - Acarodermatitis [Not Recovered/Not Resolved]
  - Rash pruritic [Unknown]
  - Neutrophilia [Unknown]
  - Drug titration error [Unknown]
  - Dystonia [Unknown]
  - Toxicity to various agents [Unknown]
